FAERS Safety Report 22240778 (Version 2)
Quarter: 2024Q3

REPORT INFORMATION
  Report Type: Report from Study
  Country: US (occurrence: US)
  Receive Date: 20230421
  Receipt Date: 20240722
  Transmission Date: 20241016
  Serious: Yes (Other)
  Sender: TAKEDA
  Company Number: US-TAKEDA-US201927869

PATIENT
  Sex: Male

DRUGS (1)
  1. HUMAN IMMUNOGLOBULIN G [Suspect]
     Active Substance: HUMAN IMMUNOGLOBULIN G
     Indication: Primary immunodeficiency syndrome
     Dosage: UNK
     Route: 042

REACTIONS (11)
  - Cardiac arrest [Unknown]
  - Gas poisoning [Unknown]
  - Eosinophil count increased [Unknown]
  - Illness [Unknown]
  - Nasopharyngitis [Unknown]
  - Inability to afford medication [Recovered/Resolved]
  - Lung disorder [Unknown]
  - Product dose omission issue [Unknown]
  - Swelling [Unknown]
  - Malaise [Unknown]
  - Fatigue [Unknown]
